FAERS Safety Report 25888245 (Version 1)
Quarter: 2025Q4

REPORT INFORMATION
  Report Type: Spontaneous
  Country: US (occurrence: US)
  Receive Date: 20251007
  Receipt Date: 20251007
  Transmission Date: 20260117
  Serious: Yes (Other)
  Sender: STRIDES
  Company Number: US-STRIDES PHARMA UK LTD.-2025SP001568

PATIENT

DRUGS (9)
  1. PREDNISOLONE [Suspect]
     Active Substance: PREDNISOLONE
     Indication: Drug reaction with eosinophilia and systemic symptoms
     Dosage: 50 MILLIGRAM, QD
     Route: 048
  2. PREDNISOLONE [Suspect]
     Active Substance: PREDNISOLONE
     Dosage: UNK, (DOSE TAPERED BY 10 MG EVERY 3 DAYS)
     Route: 048
  3. METHYLPREDNISOLONE [Suspect]
     Active Substance: METHYLPREDNISOLONE
     Indication: Drug reaction with eosinophilia and systemic symptoms
     Dosage: 20 MILLIGRAM (1 MG/KG/D)
     Route: 042
  4. DUPILUMAB [Suspect]
     Active Substance: DUPILUMAB
     Indication: Drug reaction with eosinophilia and systemic symptoms
     Dosage: 600 MILLIGRAM (A LOADING DOSE ON DAY 0)
     Route: 065
  5. DUPILUMAB [Suspect]
     Active Substance: DUPILUMAB
     Dosage: 300 MILLIGRAM (A MAINTENANCE DOSE AT DAY 7)
     Route: 065
  6. DUPILUMAB [Suspect]
     Active Substance: DUPILUMAB
     Dosage: 300 MILLIGRAM
     Route: 065
  7. DUPILUMAB [Suspect]
     Active Substance: DUPILUMAB
     Dosage: 300 MILLIGRAM (3-WEEK COURSE OF DUPILUMAB 300MG WEEKLY INJECTION)
     Route: 065
  8. DUPILUMAB [Suspect]
     Active Substance: DUPILUMAB
     Dosage: UNK (ADDITIONAL 3 WEEKS OF MAINTENANCE DOSE)
     Route: 065
  9. SULFAMETHOXAZOLE\TRIMETHOPRIM [Concomitant]
     Active Substance: SULFAMETHOXAZOLE\TRIMETHOPRIM
     Indication: Sinusitis
     Dosage: UNK
     Route: 065

REACTIONS (1)
  - Upper respiratory tract infection [Unknown]
